FAERS Safety Report 11411141 (Version 1)
Quarter: 2015Q3

REPORT INFORMATION
  Report Type: Spontaneous
  Country: US (occurrence: US)
  Receive Date: 20150824
  Receipt Date: 20150824
  Transmission Date: 20151125
  Serious: Yes (Hospitalization, Other)
  Sender: FDA-Public Use
  Company Number: US-BAUSCH-BL-2015-019502

PATIENT
  Age: 55 Year
  Sex: Male

DRUGS (2)
  1. CHLORDIAZEPOXIDE [Suspect]
     Active Substance: CHLORDIAZEPOXIDE
     Indication: ALCOHOL WITHDRAWAL SYNDROME
     Dosage: A TOTAL OF 300 MG OF CHLORDIAZEPOXIDE WAS GIVEN FOR 9 DAYS IN TAPERING DOSE
     Route: 065
  2. LACTULOSE. [Concomitant]
     Active Substance: LACTULOSE
     Indication: HEPATIC ENCEPHALOPATHY

REACTIONS (2)
  - Toxicity to various agents [Recovered/Resolved]
  - Hepatic encephalopathy [Unknown]
